FAERS Safety Report 8425371-0 (Version None)
Quarter: 2012Q2

REPORT INFORMATION
  Report Type: 
  Country: None (occurrence: None)
  Receive Date: 20120611
  Receipt Date: 20120531
  Transmission Date: 20120825
  Serious: Yes (Hospitalization, Other)
  Sender: FDA-Public Use
  Company Number: JP-VERTEX PHARMACEUTICALS INC.-AE-2012-006307

PATIENT
  Age: 50 Year
  Sex: Male

DRUGS (19)
  1. TELAVIC (TELAPREVIR) [Suspect]
     Route: 048
     Dates: start: 20120223
  2. TELAVIC (TELAPREVIR) [Suspect]
     Route: 048
     Dates: end: 20120404
  3. TELAVIC (TELAPREVIR) [Suspect]
     Route: 048
     Dates: start: 20120414, end: 20120418
  4. PEG-INTRON [Concomitant]
     Indication: HEPATITIS C
     Route: 058
     Dates: start: 20120126
  5. TELAVIC (TELAPREVIR) [Suspect]
     Route: 048
     Dates: start: 20120206, end: 20120222
  6. TELAVIC (TELAPREVIR) [Suspect]
     Route: 048
     Dates: start: 20120410, end: 20120412
  7. REBETOL [Concomitant]
     Route: 048
     Dates: start: 20120416
  8. SEDEKOPAN [Concomitant]
     Route: 048
     Dates: start: 20120308
  9. OLMESARTAN MEDOXOMIL [Concomitant]
     Route: 048
  10. REBETOL [Concomitant]
     Route: 048
     Dates: start: 20120329, end: 20120407
  11. GASMOTIN [Concomitant]
     Route: 048
     Dates: start: 20120127
  12. CONIEL [Concomitant]
     Route: 048
  13. REBETOL [Concomitant]
     Route: 048
     Dates: start: 20120223, end: 20120328
  14. RIKKUNSHI-TO [Concomitant]
     Route: 048
     Dates: start: 20120216
  15. TELAVIC (TELAPREVIR) [Suspect]
     Indication: HEPATITIS C
     Route: 048
     Dates: start: 20120126, end: 20120205
  16. REBETOL [Concomitant]
     Indication: HEPATITIS C
     Route: 048
     Dates: start: 20120126, end: 20120222
  17. LOXONIN [Concomitant]
     Route: 048
  18. TELAVIC (TELAPREVIR) [Suspect]
     Route: 048
     Dates: start: 20120405, end: 20120407
  19. REBETOL [Concomitant]
     Route: 048
     Dates: start: 20120410, end: 20120415

REACTIONS (2)
  - RENAL IMPAIRMENT [None]
  - HAEMOGLOBIN DECREASED [None]
